FAERS Safety Report 8796353 (Version 3)
Quarter: 2012Q4

REPORT INFORMATION
  Report Type: 
  Country: US (occurrence: US)
  Receive Date: 20120920
  Receipt Date: 20121012
  Transmission Date: 20130627
  Serious: Yes (Death)
  Sender: FDA-Public Use
  Company Number: PHEH2012US018343

PATIENT
  Sex: Female
  Weight: 79.82 kg

DRUGS (1)
  1. AFINITOR [Suspect]
     Indication: RENAL CANCER
     Dosage: 10 mg, QD
     Route: 048

REACTIONS (2)
  - Neoplasm progression [Fatal]
  - Malignant neoplasm progression [Fatal]
